FAERS Safety Report 7499244-4 (Version None)
Quarter: 2011Q2

REPORT INFORMATION
  Report Type: 
  Country: None (occurrence: None)
  Receive Date: 20110524
  Receipt Date: 20110518
  Transmission Date: 20111010
  Serious: Yes (Other)
  Sender: FDA-Public Use
  Company Number: DE-JNJFOC-20110503323

PATIENT
  Sex: Female
  Weight: 97 kg

DRUGS (3)
  1. FENTANYL [Suspect]
     Indication: BACK PAIN
     Route: 065
  2. GABAPENTIN [Concomitant]
     Route: 065
  3. TAPENTADOL [Suspect]
     Indication: BACK PAIN
     Route: 048
     Dates: start: 20101124, end: 20101202

REACTIONS (5)
  - AGITATION [None]
  - DRUG INEFFECTIVE [None]
  - TREMOR [None]
  - SLEEP DISORDER [None]
  - WITHDRAWAL SYNDROME [None]
